FAERS Safety Report 20849141 (Version 1)
Quarter: 2022Q2

REPORT INFORMATION
  Report Type: Spontaneous
  Country: US (occurrence: US)
  Receive Date: 20220519
  Receipt Date: 20220519
  Transmission Date: 20220720
  Serious: No
  Sender: FDA-Public Use
  Company Number: US-MIC-a0P5b00000SQ4N9EAL

PATIENT
  Sex: Male

DRUGS (1)
  1. ADDERALL XR [Suspect]
     Active Substance: AMPHETAMINE ASPARTATE\AMPHETAMINE SULFATE\DEXTROAMPHETAMINE SACCHARATE\DEXTROAMPHETAMINE SULFATE
     Indication: Attention deficit hyperactivity disorder
     Dosage: 20 MILLIGRAM, BID
     Route: 065
     Dates: start: 202112, end: 20220512

REACTIONS (3)
  - Drug ineffective [Unknown]
  - Product temperature excursion issue [Not Recovered/Not Resolved]
  - Product administration error [Unknown]
